FAERS Safety Report 7808019-5 (Version None)
Quarter: 2011Q4

REPORT INFORMATION
  Report Type: 
  Country: None (occurrence: None)
  Receive Date: 20111011
  Receipt Date: 20111011
  Transmission Date: 20120403
  Serious: Yes (Hospitalization)
  Sender: FDA-Public Use
  Company Number: None

PATIENT
  Sex: Female
  Weight: 125.9 kg

DRUGS (14)
  1. LATUDA [Suspect]
     Indication: SCHIZOPHRENIA
     Dosage: 40 MG
     Route: 048
     Dates: start: 20110824, end: 20110825
  2. ALBUTEROL [Concomitant]
  3. CARAFATE [Concomitant]
     Route: 048
  4. SINGULAIR [Concomitant]
  5. COGENTIN [Concomitant]
     Route: 048
  6. LAMICTAL [Concomitant]
     Route: 048
  7. ADVAIR DISKUS 500/50 [Concomitant]
     Route: 048
  8. GABAPENTIN [Concomitant]
     Route: 048
  9. TRAZODONE HYDROCHLORIDE [Concomitant]
     Route: 048
  10. LATUDA -LURASIDINE- [Concomitant]
     Dosage: 80 MG
     Route: 048
     Dates: start: 20110826, end: 20110826
  11. SEROQUEL XR [Concomitant]
     Route: 048
  12. ZOLOFT [Concomitant]
     Route: 048
  13. PREDNISONE [Concomitant]
     Route: 048
  14. BENADRYL [Concomitant]
     Route: 048

REACTIONS (1)
  - HYPERSENSITIVITY [None]
